FAERS Safety Report 5474614-4 (Version None)
Quarter: 2007Q4

REPORT INFORMATION
  Report Type: 
  Country: None (occurrence: None)
  Receive Date: 20071002
  Receipt Date: 20070921
  Transmission Date: 20080405
  Serious: Yes (Other)
  Sender: FDA-Public Use
  Company Number: US-GENENTECH-248315

PATIENT
  Sex: Female

DRUGS (6)
  1. AVASTIN [Suspect]
     Indication: BREAST CANCER METASTATIC
  2. HERCEPTIN [Suspect]
     Indication: BREAST CANCER METASTATIC
  3. CARBOPLATIN [Concomitant]
     Indication: BREAST CANCER METASTATIC
  4. TAXOL [Concomitant]
     Indication: BREAST CANCER METASTATIC
  5. FEMARA [Concomitant]
     Indication: BREAST CANCER METASTATIC
  6. AROMASIN [Concomitant]
     Indication: DRUG USE FOR UNKNOWN INDICATION

REACTIONS (1)
  - HEPATIC CIRRHOSIS [None]
